FAERS Safety Report 23134948 (Version 2)
Quarter: 2023Q4

REPORT INFORMATION
  Report Type: Spontaneous
  Country: JP (occurrence: None)
  Receive Date: 20231101
  Receipt Date: 20231127
  Transmission Date: 20240110
  Serious: Yes (Life-Threatening, Hospitalization, Other)
  Sender: FDA-Public Use
  Company Number: 2023A247317

PATIENT
  Age: 56 Year
  Sex: Male

DRUGS (10)
  1. IMFINZI [Suspect]
     Active Substance: DURVALUMAB
     Indication: Bile duct cancer
     Dosage: DOSE UNKNOWN UNKNOWN
     Route: 042
     Dates: start: 20230412, end: 20230726
  2. GEMCITABINE HYDROCHLORIDE [Concomitant]
     Active Substance: GEMCITABINE HYDROCHLORIDE
     Indication: Bile duct cancer
     Dosage: DOSE UNKNOWN
     Dates: start: 20230412, end: 20230726
  3. CISPLATIN [Concomitant]
     Active Substance: CISPLATIN
     Indication: Bile duct cancer
     Dosage: DOSE UNKNOWN
     Dates: start: 20230412, end: 20230726
  4. LORCAM [Concomitant]
     Dosage: DOSE UNKNOWN
  5. MOSAPRIDE CITRATE DIHYDRATE [Concomitant]
     Active Substance: MOSAPRIDE CITRATE DIHYDRATE
     Dosage: DOSE UNKNOWN
  6. REBAMIPIDE [Concomitant]
     Active Substance: REBAMIPIDE
     Dosage: DOSE UNKNOWN
  7. HEMONASE [Concomitant]
     Dosage: DOSE UNKNOWN
  8. MAGNESIUM OXIDE [Concomitant]
     Active Substance: MAGNESIUM OXIDE
     Dosage: DOSE UNKNOWN
  9. URSO [Concomitant]
     Active Substance: URSODIOL
     Dosage: DOSE UNKNOWN
  10. PANTETHINE [Concomitant]
     Active Substance: PANTETHINE
     Dosage: DOSE UNKNOWN

REACTIONS (6)
  - Septic shock [Recovering/Resolving]
  - Klebsiella bacteraemia [Recovering/Resolving]
  - Renal disorder [Recovering/Resolving]
  - Gastric ulcer [Recovering/Resolving]
  - Immune-mediated pancreatitis [Recovering/Resolving]
  - Pyrexia [Recovering/Resolving]

NARRATIVE: CASE EVENT DATE: 20230413
